FAERS Safety Report 13415553 (Version 4)
Quarter: 2017Q4

REPORT INFORMATION
  Report Type: Spontaneous
  Country: US (occurrence: US)
  Receive Date: 20170407
  Receipt Date: 20171129
  Transmission Date: 20180320
  Serious: Yes (Other)
  Sender: FDA-Public Use
  Company Number: US-BAYER-2017-063108

PATIENT
  Age: 43 Year
  Sex: Male

DRUGS (3)
  1. KOGENATE FS [Suspect]
     Active Substance: ANTIHEMOPHILIC FACTOR, HUMAN RECOMBINANT
     Indication: FACTOR VIII DEFICIENCY
     Dosage: 2000 IU, PRN
     Route: 042
     Dates: start: 20160927
  2. KOGENATE FS [Suspect]
     Active Substance: ANTIHEMOPHILIC FACTOR, HUMAN RECOMBINANT
     Indication: FACTOR VIII DEFICIENCY
     Dosage: 2000 IU, PRN
     Route: 042
     Dates: start: 20170404
  3. KOGENATE FS [Suspect]
     Active Substance: ANTIHEMOPHILIC FACTOR, HUMAN RECOMBINANT
     Indication: FACTOR VIII DEFICIENCY
     Dosage: 2000 IU, EVERY 12 HR FOR TOTAL OF 1-2 DOSES PRN BLEEDING
     Route: 042
     Dates: start: 20120717

REACTIONS (4)
  - Haemorrhage [None]
  - Muscle haemorrhage [None]
  - Post procedural haemorrhage [None]
  - Soft tissue haemorrhage [None]
